FAERS Safety Report 4282222-6 (Version None)
Quarter: 2004Q1

REPORT INFORMATION
  Report Type: 
  Country: None (occurrence: None)
  Receive Date: 20040130
  Receipt Date: 20040123
  Transmission Date: 20041129
  Serious: Yes (Other)
  Sender: FDA-Public Use
  Company Number: TH-GLAXOSMITHKLINE-B0320966A

PATIENT
  Age: 10 Year
  Sex: Female

DRUGS (1)
  1. ZINACEF [Suspect]
     Indication: PNEUMONIA
     Dosage: 250MG PER DAY
     Route: 065
     Dates: start: 20040120, end: 20040120

REACTIONS (3)
  - ANAPHYLACTIC REACTION [None]
  - CHEST DISCOMFORT [None]
  - DYSPNOEA [None]
